FAERS Safety Report 6826717-7 (Version None)
Quarter: 2010Q3

REPORT INFORMATION
  Report Type: 
  Country: None (occurrence: None)
  Receive Date: 20100709
  Receipt Date: 20100701
  Transmission Date: 20110219
  Serious: Yes (Other)
  Sender: FDA-Public Use
  Company Number: GXKR2010AU07329

PATIENT
  Age: 64 Year
  Sex: Male

DRUGS (4)
  1. FLUOROURACIL [Suspect]
     Indication: OESOPHAGEAL ADENOCARCINOMA
     Dosage: UNK
  2. CISPLATIN [Concomitant]
     Indication: OESOPHAGEAL ADENOCARCINOMA
     Dosage: 70 MG/M2 DAY 1
     Route: 065
  3. TRIMETHOPRIM [Concomitant]
  4. PANTOPRAZOLE [Concomitant]

REACTIONS (3)
  - ATRIOVENTRICULAR BLOCK FIRST DEGREE [None]
  - HYPOTENSION [None]
  - SINUS BRADYCARDIA [None]
